FAERS Safety Report 7156809-7 (Version None)
Quarter: 2010Q4

REPORT INFORMATION
  Report Type: 
  Country: None (occurrence: None)
  Receive Date: 20101122
  Receipt Date: 20101104
  Transmission Date: 20110411
  Serious: Yes (Hospitalization)
  Sender: FDA-Public Use
  Company Number: AU-IGSA-IG727

PATIENT
  Sex: Male

DRUGS (1)
  1. FLEBOGAMMA 5% DIF [Suspect]
     Indication: DEMYELINATING POLYNEUROPATHY
     Dosage: 35 G I.V.
     Route: 042
     Dates: start: 20101101

REACTIONS (8)
  - BACK PAIN [None]
  - CHEST DISCOMFORT [None]
  - CHILLS [None]
  - DYSPNOEA [None]
  - FEELING HOT [None]
  - HYPOAESTHESIA [None]
  - INFUSION RELATED REACTION [None]
  - MUSCULAR WEAKNESS [None]
